FAERS Safety Report 10438277 (Version 1)
Quarter: 2014Q3

REPORT INFORMATION
  Report Type: Spontaneous
  Country: US (occurrence: US)
  Receive Date: 20140908
  Receipt Date: 20140908
  Transmission Date: 20150326
  Serious: Yes (Hospitalization)
  Sender: FDA-Public Use
  Company Number: US-GLAXOSMITHKLINE-A1087233A

PATIENT
  Age: 83 Year
  Sex: Female

DRUGS (15)
  1. KCL [Concomitant]
     Active Substance: POTASSIUM CHLORIDE
  2. LEVOTHYROXINE [Concomitant]
     Active Substance: LEVOTHYROXINE
  3. SPIRIVA [Concomitant]
     Active Substance: TIOTROPIUM BROMIDE MONOHYDRATE
  4. AMLODIPINE [Concomitant]
     Active Substance: AMLODIPINE BESYLATE
  5. TERAZOSIN [Concomitant]
     Active Substance: TERAZOSIN\TERAZOSIN HYDROCHLORIDE
  6. TYLENOL [Concomitant]
     Active Substance: ACETAMINOPHEN
  7. ADVAIR HFA [Suspect]
     Active Substance: FLUTICASONE PROPIONATE\SALMETEROL XINAFOATE
     Indication: PRODUCT USED FOR UNKNOWN INDICATION
     Dosage: 1PUFF TWICE PER DAY
     Route: 055
     Dates: start: 2010, end: 2012
  8. VENTOLIN [Concomitant]
     Active Substance: ALBUTEROL SULFATE
  9. TRAMADOL [Concomitant]
     Active Substance: TRAMADOL
  10. FUROSEMIDE. [Concomitant]
     Active Substance: FUROSEMIDE
  11. FLOVENT [Suspect]
     Active Substance: FLUTICASONE PROPIONATE
     Indication: ASTHMA
     Dosage: 1PUFF TWICE PER DAY
     Route: 055
     Dates: start: 2012
  12. OXYBUTYNIN [Concomitant]
     Active Substance: OXYBUTYNIN
  13. GLYBURIDE + METFORMIN [Concomitant]
  14. NEBULIZER [Concomitant]
     Active Substance: UNSPECIFIED INGREDIENT
  15. LOSARTAN [Concomitant]
     Active Substance: LOSARTAN

REACTIONS (7)
  - Procedural complication [Unknown]
  - Diarrhoea [Not Recovered/Not Resolved]
  - Cataract [Recovering/Resolving]
  - Angiogram [Recovering/Resolving]
  - Procedural haemorrhage [Recovering/Resolving]
  - Contusion [Recovering/Resolving]
  - Cellulitis [Recovering/Resolving]

NARRATIVE: CASE EVENT DATE: 2010
